FAERS Safety Report 11306391 (Version 1)
Quarter: 2015Q3

REPORT INFORMATION
  Report Type: Report from Study
  Country: ES (occurrence: ES)
  Receive Date: 20150723
  Receipt Date: 20150723
  Transmission Date: 20151125
  Serious: Yes (Hospitalization)
  Sender: FDA-Public Use
  Company Number: ES-GLAXOSMITHKLINE-ES2015GSK104125

PATIENT
  Sex: Male
  Weight: 104 kg

DRUGS (3)
  1. FENTANIL [Concomitant]
     Active Substance: FENTANYL
     Indication: CANCER PAIN
     Dosage: 100 UG, UNK
  2. PAZOPANIB [Suspect]
     Active Substance: PAZOPANIB
     Indication: SARCOMA
     Dosage: 800 MG, QD
     Dates: start: 20150610
  3. FENTANIL [Concomitant]
     Active Substance: FENTANYL
     Dosage: 200 UG, UNK

REACTIONS (1)
  - Performance status decreased [Not Recovered/Not Resolved]

NARRATIVE: CASE EVENT DATE: 20150714
